FAERS Safety Report 24990740 (Version 1)
Quarter: 2025Q1

REPORT INFORMATION
  Report Type: Spontaneous
  Country: DE (occurrence: DE)
  Receive Date: 20250220
  Receipt Date: 20250220
  Transmission Date: 20250409
  Serious: Yes (Other)
  Sender: MERCK SHARP & DOHME LLC
  Company Number: DE-009507513-2255303

PATIENT
  Age: 28 Year
  Sex: Male

DRUGS (1)
  1. PEMBROLIZUMAB [Suspect]
     Active Substance: PEMBROLIZUMAB
     Indication: Colon cancer
     Dates: start: 201706, end: 201902

REACTIONS (9)
  - Autoimmune thyroiditis [Unknown]
  - Off label use [Unknown]
  - Gastroenteritis [Recovering/Resolving]
  - Muscular weakness [Unknown]
  - Vomiting [Unknown]
  - Ascites [Recovered/Resolved]
  - Ileus [Unknown]
  - Nausea [Unknown]
  - Weight decreased [Recovering/Resolving]

NARRATIVE: CASE EVENT DATE: 20170101
